FAERS Safety Report 16514621 (Version 1)
Quarter: 2019Q3

REPORT INFORMATION
  Report Type: Spontaneous
  Country: US (occurrence: US)
  Receive Date: 20190702
  Receipt Date: 20190702
  Transmission Date: 20191004
  Serious: Yes (Other)
  Sender: FDA-Public Use
  Company Number: US-BAYER-2019-120208

PATIENT
  Age: 52 Year
  Sex: Female

DRUGS (1)
  1. STIVARGA [Suspect]
     Active Substance: REGORAFENIB
     Indication: COLORECTAL CANCER
     Dosage: 120 MG DAILY 3 WEEKS ON 1 WEEK OFF
     Route: 048
     Dates: start: 201904, end: 201904

REACTIONS (2)
  - Haemolytic anaemia [Recovered/Resolved]
  - Off label use [None]

NARRATIVE: CASE EVENT DATE: 201904
